FAERS Safety Report 12079083 (Version 3)
Quarter: 2016Q2

REPORT INFORMATION
  Report Type: Spontaneous
  Country: US (occurrence: US)
  Receive Date: 20160216
  Receipt Date: 20160503
  Transmission Date: 20160815
  Serious: No
  Sender: FDA-Public Use
  Company Number: US-PFIZER INC-2016060495

PATIENT
  Age: 67 Year
  Sex: Male
  Weight: 113.4 kg

DRUGS (7)
  1. LYRICA [Suspect]
     Active Substance: PREGABALIN
     Indication: NEUROPATHY PERIPHERAL
     Dosage: 50 MG, 3X/DAY
     Route: 048
     Dates: start: 20160128, end: 20160131
  2. LANTUS [Concomitant]
     Active Substance: INSULIN GLARGINE
     Indication: DIABETES MELLITUS
     Dosage: UNK UNK, 1X/DAY (20 UNITS A NIGHT)
  3. VITAMIN D [Concomitant]
     Active Substance: CHOLECALCIFEROL
     Indication: VITAMIN D DEFICIENCY
     Dosage: 6 DF, UNK (6 PILLS)
  4. GLIMEPIRIDE. [Concomitant]
     Active Substance: GLIMEPIRIDE
     Indication: DIABETES MELLITUS
     Dosage: 8 MG, 1X/DAY (TWO AT A TIME ONCE A DAY)
     Route: 048
  5. OMEPRAZOLE. [Concomitant]
     Active Substance: OMEPRAZOLE
     Indication: GASTROINTESTINAL DISORDER
     Dosage: 40 MG, 1X/DAY
     Route: 048
  6. SIMVASTATIN. [Concomitant]
     Active Substance: SIMVASTATIN
     Indication: BLOOD CHOLESTEROL INCREASED
     Dosage: 20 MG, 1X/DAY (ONCE IN THE EVENING)
  7. LIPITOR [Concomitant]
     Active Substance: ATORVASTATIN CALCIUM
     Indication: BLOOD PRESSURE ABNORMAL
     Dosage: 2.5 MG, 1X/DAY
     Route: 048

REACTIONS (12)
  - Malaise [Recovered/Resolved]
  - Urticaria [Recovered/Resolved]
  - Agitation [Not Recovered/Not Resolved]
  - Regurgitation [Unknown]
  - Vomiting [Recovering/Resolving]
  - Irritability [Not Recovered/Not Resolved]
  - Nausea [Unknown]
  - Peripheral swelling [Recovering/Resolving]
  - Gait disturbance [Unknown]
  - Burning sensation [Recovering/Resolving]
  - Anger [Not Recovered/Not Resolved]
  - Condition aggravated [Recovering/Resolving]

NARRATIVE: CASE EVENT DATE: 201601
